FAERS Safety Report 10379534 (Version 2)
Quarter: 2014Q3

REPORT INFORMATION
  Report Type: Spontaneous
  Country: CZ (occurrence: CZ)
  Receive Date: 20140812
  Receipt Date: 20140829
  Transmission Date: 20150326
  Serious: Yes (Hospitalization, Other)
  Sender: FDA-Public Use
  Company Number: CZ-TEVA-499982ISR

PATIENT
  Age: 65 Year
  Sex: Male

DRUGS (8)
  1. RISEDRONAT TEVA 35 MG [Suspect]
     Active Substance: RISEDRONATE SODIUM
     Indication: OSTEOPOROSIS
     Route: 048
     Dates: start: 20120410, end: 20120501
  2. TAMUROX [Concomitant]
     Route: 048
  3. PRENESSA [Concomitant]
     Active Substance: PERINDOPRIL
     Route: 048
  4. ANOPYRIN [Concomitant]
     Active Substance: ASPIRIN
     Route: 048
  5. LORADUR MITE [Concomitant]
     Route: 048
  6. AMLODIPINE [Concomitant]
     Active Substance: AMLODIPINE BESYLATE
     Route: 048
  7. METHOTREXATE [Concomitant]
     Active Substance: METHOTREXATE
     Route: 048
  8. ACIDUM FOLICUM L?IVA [Concomitant]
     Route: 048

REACTIONS (2)
  - Peptic ulcer [Recovered/Resolved]
  - Gastritis [Recovered/Resolved]

NARRATIVE: CASE EVENT DATE: 20120508
